FAERS Safety Report 19272449 (Version 1)
Quarter: 2021Q2

REPORT INFORMATION
  Report Type: Spontaneous
  Country: DE (occurrence: DE)
  Receive Date: 20210519
  Receipt Date: 20210519
  Transmission Date: 20210717
  Serious: Yes (Other)
  Sender: FDA-Public Use
  Company Number: DE-AUROBINDO-AUR-APL-2021-019921

PATIENT
  Age: 45 Year
  Sex: Male

DRUGS (2)
  1. PEGINTERFERON ALFA?2A. [Suspect]
     Active Substance: PEGINTERFERON ALFA-2A
     Indication: CHRONIC HEPATITIS C
     Dosage: UNK
     Route: 065
  2. RIBAVIRIN. [Suspect]
     Active Substance: RIBAVIRIN
     Indication: CHRONIC HEPATITIS C
     Dosage: UNK
     Route: 065

REACTIONS (8)
  - Leukopenia [Not Recovered/Not Resolved]
  - Insomnia [Recovered/Resolved]
  - Anaemia [Recovered/Resolved]
  - Depression [Recovered/Resolved]
  - Pruritus [Recovered/Resolved]
  - Irritability [Recovered/Resolved]
  - Memory impairment [Recovered/Resolved]
  - Fatigue [Recovered/Resolved]

NARRATIVE: CASE EVENT DATE: 20120523
